FAERS Safety Report 7589449-6 (Version None)
Quarter: 2011Q3

REPORT INFORMATION
  Report Type: 
  Country: None (occurrence: None)
  Receive Date: 20110705
  Receipt Date: 20110622
  Transmission Date: 20111222
  Serious: Yes (Other)
  Sender: FDA-Public Use
  Company Number: US-ROCHE-769906

PATIENT
  Sex: Male
  Weight: 76.2 kg

DRUGS (2)
  1. ACCUTANE [Suspect]
     Indication: ACNE
     Route: 048
     Dates: start: 20040625, end: 20041201
  2. MINOCYCLINE HCL [Concomitant]
     Indication: ACNE
     Dates: start: 20040625

REACTIONS (8)
  - CROHN'S DISEASE [None]
  - LIP DRY [None]
  - STRESS [None]
  - COLITIS ULCERATIVE [None]
  - CHAPPED LIPS [None]
  - ANXIETY [None]
  - INFLAMMATORY BOWEL DISEASE [None]
  - PROCTITIS [None]
